FAERS Safety Report 8183135-X (Version None)
Quarter: 2012Q1

REPORT INFORMATION
  Report Type: 
  Country: None (occurrence: None)
  Receive Date: 20120130
  Receipt Date: 20111107
  Transmission Date: 20120608
  Serious: Yes (Other)
  Sender: FDA-Public Use
  Company Number: 2011-00545

PATIENT
  Age: 50 Year
  Sex: Male

DRUGS (4)
  1. ATORVASTATIN [Suspect]
     Indication: PRODUCT USED FOR UNKNOWN INDICATION
     Dosage: 40 MG (40 MG, UNK), UNKNOWN
  2. ROSIGLITAZONE (UNKNOWN) [Concomitant]
  3. SIMVASTATIN [Suspect]
     Indication: PRODUCT USED FOR UNKNOWN INDICATION
     Dosage: 80 MG (80 MG, UNK), UNKNOWN
  4. FENOFIBRATE [Suspect]
     Indication: PRODUCT USED FOR UNKNOWN INDICATION
     Dosage: 267 MG (267 MG, UNK), UNKNOWN

REACTIONS (2)
  - DRUG INTERACTION [None]
  - HIGH DENSITY LIPOPROTEIN DECREASED [None]
